FAERS Safety Report 4838161-2 (Version None)
Quarter: 2005Q4

REPORT INFORMATION
  Report Type: 
  Country: None (occurrence: None)
  Receive Date: 20051123
  Receipt Date: 20051123
  Transmission Date: 20060501
  Serious: Yes (Life-Threatening, Hospitalization)
  Sender: FDA-Public Use
  Company Number: None

PATIENT
  Sex: Female

DRUGS (2)
  1. APAP TAB [Suspect]
  2. IBUPROFEN [Concomitant]

REACTIONS (7)
  - ALANINE AMINOTRANSFERASE INCREASED [None]
  - ASPARTATE AMINOTRANSFERASE INCREASED [None]
  - LETHARGY [None]
  - MULTIPLE DRUG OVERDOSE [None]
  - NAUSEA [None]
  - OFF LABEL USE [None]
  - VOMITING [None]
